FAERS Safety Report 4658683-7 (Version None)
Quarter: 2005Q2

REPORT INFORMATION
  Report Type: 
  Country: None (occurrence: None)
  Receive Date: 20050510
  Receipt Date: 20050510
  Transmission Date: 20051028
  Serious: Yes (Other)
  Sender: FDA-Public Use
  Company Number: None

PATIENT
  Age: 4 Year
  Sex: Female
  Weight: 58.9676 kg

DRUGS (1)
  1. CLONAZEPAM [Suspect]
     Indication: GENERALISED ANXIETY DISORDER
     Dosage: 0.5MG  BID  ORAL
     Route: 048
     Dates: start: 20050408, end: 20050408

REACTIONS (2)
  - ANXIETY [None]
  - DRUG INEFFECTIVE [None]
